FAERS Safety Report 12606100 (Version 1)
Quarter: 2016Q3

REPORT INFORMATION
  Report Type: Spontaneous
  Country: JP (occurrence: JP)
  Receive Date: 20160729
  Receipt Date: 20160729
  Transmission Date: 20161109
  Serious: Yes (Hospitalization)
  Sender: FDA-Public Use
  Company Number: JP-ACCORD-042688

PATIENT
  Age: 72 Year
  Sex: Male

DRUGS (4)
  1. SPIRONOLACTONE. [Concomitant]
     Active Substance: SPIRONOLACTONE
     Indication: CARDIAC FAILURE CHRONIC
  2. QUETIAPINE. [Suspect]
     Active Substance: QUETIAPINE
     Indication: DISORIENTATION
     Dosage: INITIALLY RECEIVED 25MG/DAY, INCREASED TO 100MG/DAY, INCREASED TO FINAL DOSE: 225MG/DAY.
  3. FUROSEMIDE. [Concomitant]
     Active Substance: FUROSEMIDE
     Indication: CARDIAC FAILURE CHRONIC
  4. BROTIZOLAM [Concomitant]
     Active Substance: BROTIZOLAM
     Indication: DISORIENTATION

REACTIONS (5)
  - Hypotension [Recovered/Resolved]
  - Sinus bradycardia [Recovered/Resolved]
  - Electrocardiogram QT prolonged [Unknown]
  - Supraventricular extrasystoles [Unknown]
  - Somnolence [Unknown]
